FAERS Safety Report 10951859 (Version 3)
Quarter: 2015Q4

REPORT INFORMATION
  Report Type: Report from Study
  Country: US (occurrence: US)
  Receive Date: 20150325
  Receipt Date: 20151128
  Transmission Date: 20160304
  Serious: No
  Sender: FDA-Public Use
  Company Number: US-AMGEN-USASL2015026761

PATIENT
  Age: 45 Year
  Sex: Female

DRUGS (2)
  1. ENBREL [Suspect]
     Active Substance: ETANERCEPT
     Indication: RHEUMATOID ARTHRITIS
     Dosage: 50 MG, QWK
     Route: 065
     Dates: start: 20140723, end: 20150204
  2. PREDNISONE. [Concomitant]
     Active Substance: PREDNISONE

REACTIONS (9)
  - Stomatitis [Unknown]
  - Pain [Not Recovered/Not Resolved]
  - Swollen tongue [Unknown]
  - Glossodynia [Not Recovered/Not Resolved]
  - Arthralgia [Unknown]
  - Tongue discolouration [Recovered/Resolved]
  - Tongue ulceration [Not Recovered/Not Resolved]
  - Peripheral swelling [Unknown]
  - Drug dose omission [Not Recovered/Not Resolved]

NARRATIVE: CASE EVENT DATE: 2015
